FAERS Safety Report 16046719 (Version 2)
Quarter: 2019Q2

REPORT INFORMATION
  Report Type: Other
  Country: US (occurrence: US)
  Receive Date: 20190307
  Receipt Date: 20190502
  Transmission Date: 20190711
  Serious: Yes (Disabling, Other)
  Sender: FDA-Public Use
  Company Number: US-ACORDA-ACO_157412_2019

PATIENT
  Age: 50 Year
  Sex: Female

DRUGS (1)
  1. AMPYRA [Suspect]
     Active Substance: DALFAMPRIDINE
     Indication: MULTIPLE SCLEROSIS
     Dosage: 10 MILLIGRAM, BID
     Route: 048
     Dates: end: 2019

REACTIONS (4)
  - Swollen tongue [Unknown]
  - Urinary tract infection [Not Recovered/Not Resolved]
  - Oral pain [Unknown]
  - Aphasia [Unknown]

NARRATIVE: CASE EVENT DATE: 201901
